FAERS Safety Report 7539139-0 (Version None)
Quarter: 2011Q2

REPORT INFORMATION
  Report Type: 
  Country: None (occurrence: None)
  Receive Date: 20110610
  Receipt Date: 20011102
  Transmission Date: 20111010
  Serious: Yes (Death)
  Sender: FDA-Public Use
  Company Number: PHBS2001JP07615

PATIENT
  Sex: Male
  Weight: 90 kg

DRUGS (5)
  1. LOCHOLEST [Suspect]
     Indication: HYPERCHOLESTEROLAEMIA
     Dosage: 20 MG/DAY
     Route: 048
     Dates: start: 20001124, end: 20010220
  2. BASEN [Concomitant]
     Dates: start: 20010112, end: 20010220
  3. GLYBURIDE [Concomitant]
     Dates: start: 20010112, end: 20010220
  4. AMLODIPINE [Concomitant]
     Dates: start: 20001117
  5. TECIPUL [Concomitant]
     Dates: start: 20001117

REACTIONS (1)
  - DEATH [None]
